FAERS Safety Report 7415420-0 (Version None)
Quarter: 2011Q2

REPORT INFORMATION
  Report Type: 
  Country: None (occurrence: None)
  Receive Date: 20110414
  Receipt Date: 20110404
  Transmission Date: 20111010
  Serious: Yes (Death, Life-Threatening, Hospitalization, Other)
  Sender: FDA-Public Use
  Company Number: SE-PFIZER INC-2011081282

PATIENT
  Age: 73 Year
  Sex: Male

DRUGS (2)
  1. DRONEDARONE [Suspect]
     Indication: CARDIAC FAILURE
     Dosage: 400 MG, DAILY
     Route: 048
     Dates: start: 20101220, end: 20110126
  2. CORDARONE [Suspect]
     Indication: CARDIAC FAILURE
     Dosage: 200 MG, DAILY
     Route: 048
     Dates: start: 20100809, end: 20101202

REACTIONS (3)
  - LUNG INFILTRATION [None]
  - HYPERTHYROIDISM [None]
  - OFF LABEL USE [None]
